FAERS Safety Report 7783469-4 (Version None)
Quarter: 2011Q3

REPORT INFORMATION
  Report Type: 
  Country: None (occurrence: None)
  Receive Date: 20110928
  Receipt Date: 20110919
  Transmission Date: 20111222
  Serious: Yes (Hospitalization)
  Sender: FDA-Public Use
  Company Number: DE-SANOFI-AVENTIS-2011SA044597

PATIENT
  Age: 71 Year
  Sex: Male

DRUGS (2)
  1. LEUPROLIDE ACETATE [Suspect]
     Dosage: 3 MONTH DEPOT
     Route: 058
     Dates: start: 20101110
  2. ZOLEDRONIC ACID [Concomitant]
     Route: 042
     Dates: start: 02010308

REACTIONS (2)
  - URINARY RETENTION [None]
  - ANAEMIA OF MALIGNANT DISEASE [None]
